FAERS Safety Report 5908973-2 (Version None)
Quarter: 2008Q4

REPORT INFORMATION
  Report Type: 
  Country: None (occurrence: None)
  Receive Date: 20081006
  Receipt Date: 20081001
  Transmission Date: 20090506
  Serious: Yes (Death)
  Sender: FDA-Public Use
  Company Number: FR-NOVOPROD-279994

PATIENT
  Age: 76 Year
  Sex: Male

DRUGS (2)
  1. NOVOSEVEN [Suspect]
     Indication: COAGULOPATHY
     Dosage: 90 UG/KG, UNK
     Route: 042
  2. FONDAPARINUX [Concomitant]
     Indication: ATRIAL FIBRILLATION
     Dosage: 7.5 MG, QD

REACTIONS (1)
  - INTRACRANIAL PRESSURE INCREASED [None]
